FAERS Safety Report 10273001 (Version 1)
Quarter: 2014Q2

REPORT INFORMATION
  Report Type: Spontaneous
  Country: CA (occurrence: None)
  Receive Date: 20140630
  Receipt Date: 20140630
  Transmission Date: 20141212
  Serious: No
  Sender: FDA-Public Use
  Company Number: None

PATIENT
  Age: 21 Year
  Sex: Female
  Weight: 56.25 kg

DRUGS (1)
  1. TACTUO GEL [Suspect]
     Indication: ACNE
     Route: 061
     Dates: start: 20140602, end: 20140626

REACTIONS (6)
  - Erythema of eyelid [None]
  - Eyelids pruritus [None]
  - Eyelid oedema [None]
  - Pruritus [None]
  - Eye pruritus [None]
  - Nasal discomfort [None]
